FAERS Safety Report 7388110 (Version 5)
Quarter: 2014Q1

REPORT INFORMATION
  Report Type: Report from Study
  Country: TR (occurrence: TR)
  Receive Date: 20100514
  Receipt Date: 20140116
  Transmission Date: 20141002
  Serious: Yes (Hospitalization)
  Sender: FDA-Public Use
  Company Number: PHHO2010TR06991

PATIENT
  Sex: 0

DRUGS (1)
  1. CGP 57148B [Suspect]
     Indication: GASTROINTESTINAL STROMAL TUMOUR
     Dosage: 400 MG, UNK
     Route: 048
     Dates: start: 20100311

REACTIONS (3)
  - Anal fissure [Recovered/Resolved]
  - Anal abscess [Recovered/Resolved]
  - Febrile neutropenia [Recovered/Resolved]
